FAERS Safety Report 17561652 (Version 4)
Quarter: 2020Q4

REPORT INFORMATION
  Report Type: Report from Study
  Country: US (occurrence: US)
  Receive Date: 20200319
  Receipt Date: 20201126
  Transmission Date: 20210113
  Serious: Yes (Hospitalization)
  Sender: FDA-Public Use
  Company Number: US-ROCHE-2569718

PATIENT
  Age: 64 Year
  Sex: Male
  Weight: 80.8 kg

DRUGS (3)
  1. VENETOCLAX. [Suspect]
     Active Substance: VENETOCLAX
     Indication: CHRONIC LYMPHOCYTIC LEUKAEMIA
     Dosage: DAYS 1-7 CYCLE 3?ON 19/FEB/2020, HE RECEIVED RECENT DOSE OF VENETOCLAX.
     Route: 048
     Dates: start: 20190710
  2. OBINUTUZUMAB. [Suspect]
     Active Substance: OBINUTUZUMAB
     Indication: CHRONIC LYMPHOCYTIC LEUKAEMIA
     Dosage: DAY 1, CYCLE 1?ON 02/OCT/2019, HE RECEIVED RECENT DOSE OF OBINUTUZUMAB.
     Route: 042
     Dates: start: 20190515, end: 20191002
  3. IBRUTINIB [Suspect]
     Active Substance: IBRUTINIB
     Indication: CHRONIC LYMPHOCYTIC LEUKAEMIA
     Dosage: ON 19/FEB/2020, HE RECEIVED RECENT DOSE OF IBRUTINIB.?ON DAYS 1-28, CYCLES 1-19
     Route: 048
     Dates: start: 20190515, end: 20200219

REACTIONS (1)
  - Non-cardiac chest pain [Recovered/Resolved]

NARRATIVE: CASE EVENT DATE: 20200219
